FAERS Safety Report 6429441-8 (Version None)
Quarter: 2009Q4

REPORT INFORMATION
  Report Type: 
  Country: None (occurrence: None)
  Receive Date: 20091105
  Receipt Date: 20090526
  Transmission Date: 20100525
  Serious: No
  Sender: FDA-Public Use
  Company Number: US-ABBOTT-09P-163-0576207-00

PATIENT
  Sex: Female
  Weight: 72.186 kg

DRUGS (8)
  1. KALETRA [Suspect]
     Indication: HIV INFECTION
     Dates: start: 20070201
  2. PERCOCET [Concomitant]
     Indication: SPINAL CORD DISORDER
  3. VALIUM [Concomitant]
     Indication: INSOMNIA
     Route: 048
  4. LANTUS [Concomitant]
     Indication: DRUG USE FOR UNKNOWN INDICATION
  5. PAXIL CR [Concomitant]
     Indication: ANXIETY
  6. VALIUM [Concomitant]
     Indication: DRUG USE FOR UNKNOWN INDICATION
  7. TRUVADA [Concomitant]
     Indication: HIV INFECTION
  8. VIT C,E,CALCIUM [Concomitant]
     Indication: DRUG USE FOR UNKNOWN INDICATION

REACTIONS (3)
  - ALOPECIA [None]
  - DIABETES MELLITUS [None]
  - LYMPHADENOPATHY [None]
